FAERS Safety Report 5343256-3 (Version None)
Quarter: 2007Q2

REPORT INFORMATION
  Report Type: 
  Country: None (occurrence: None)
  Receive Date: 20070502
  Receipt Date: 20061127
  Transmission Date: 20071010
  Serious: Yes (Other)
  Sender: FDA-Public Use
  Company Number: PHEH2006US14588

PATIENT
  Sex: Male

DRUGS (1)
  1. LOTREL [Suspect]
     Indication: HYPERTENSION
     Dosage: 10/20 MG AM, 5/20 MG PM, ORAL
     Route: 048

REACTIONS (5)
  - ANGIOEDEMA [None]
  - EXCORIATION [None]
  - INJURY [None]
  - LIP SWELLING [None]
  - SINUS DISORDER [None]
